FAERS Safety Report 5376618-9 (Version None)
Quarter: 2007Q2

REPORT INFORMATION
  Report Type: 
  Country: None (occurrence: None)
  Receive Date: 20070627
  Receipt Date: 20070615
  Transmission Date: 20071010
  Serious: Yes (Hospitalization)
  Sender: FDA-Public Use
  Company Number: B0431015A

PATIENT
  Age: 38 Year
  Sex: Male

DRUGS (1)
  1. VALTREX [Suspect]
     Indication: HERPES ZOSTER
     Dosage: 1000 MG / THREE TIMES PER DAY / ORAL
     Route: 048
     Dates: start: 20060707, end: 20060709

REACTIONS (5)
  - DELIRIUM [None]
  - DRY MOUTH [None]
  - DYSARTHRIA [None]
  - ENCEPHALOPATHY [None]
  - PERITONEAL DIALYSIS [None]
